FAERS Safety Report 7491967-6 (Version None)
Quarter: 2011Q1

REPORT INFORMATION
  Report Type: 
  Country: None (occurrence: None)
  Receive Date: 20110318
  Receipt Date: 20100603
  Transmission Date: 20110831
  Serious: Yes (Other)
  Sender: FDA-Public Use
  Company Number: 2010SP031169

PATIENT
  Age: 45 Year
  Sex: Female

DRUGS (8)
  1. PREDNISONE [Concomitant]
  2. REBETOL [Suspect]
     Indication: HEPATITIS C
     Dosage: PO
     Route: 048
     Dates: start: 20090514, end: 20100426
  3. TYLENOL-500 [Suspect]
     Indication: SUICIDE ATTEMPT
  4. ASPIRIN [Suspect]
     Indication: SUICIDE ATTEMPT
  5. IBUPROFEN [Concomitant]
  6. INSULIN [Concomitant]
  7. PEG-INTRON [Suspect]
     Indication: HEPATITIS C
     Dosage: 120 MCG; QW; SC
     Route: 058
     Dates: start: 20090514, end: 20100426
  8. LISINOPRIL [Concomitant]

REACTIONS (3)
  - ALCOHOL ABUSE [None]
  - SUICIDE ATTEMPT [None]
  - MEDICATION ERROR [None]
